FAERS Safety Report 5762273-2 (Version None)
Quarter: 2008Q2

REPORT INFORMATION
  Report Type: 
  Country: None (occurrence: None)
  Receive Date: 20080609
  Receipt Date: 20080602
  Transmission Date: 20081010
  Serious: Yes (Hospitalization)
  Sender: FDA-Public Use
  Company Number: RU-JNJFOC-20080501852

PATIENT
  Sex: Female

DRUGS (13)
  1. DOXORUBICIN HCL [Suspect]
     Dosage: CYCLE 12
     Route: 042
  2. DOXORUBICIN HCL [Suspect]
     Dosage: CYCLE 11
     Route: 042
  3. DOXORUBICIN HCL [Suspect]
     Dosage: CYCLE 10
     Route: 042
  4. DOXORUBICIN HCL [Suspect]
     Dosage: CYCLE 9
     Route: 042
  5. DOXORUBICIN HCL [Suspect]
     Dosage: CYCLE 8
     Route: 042
  6. DOXORUBICIN HCL [Suspect]
     Dosage: CYCLE 7
     Route: 042
  7. DOXORUBICIN HCL [Suspect]
     Dosage: CYCLE 6
     Route: 042
  8. DOXORUBICIN HCL [Suspect]
     Dosage: CYCLE 5
     Route: 042
  9. DOXORUBICIN HCL [Suspect]
     Dosage: CYCLE 4
     Route: 042
  10. DOXORUBICIN HCL [Suspect]
     Dosage: CYCLE 3
     Route: 042
  11. DOXORUBICIN HCL [Suspect]
     Dosage: CYCLE 2
     Route: 042
  12. DOXORUBICIN HCL [Suspect]
     Indication: OVARIAN CANCER
     Dosage: CYCLE 1
     Route: 042
  13. TRABECTEDIN (YONDELIS) [Suspect]
     Indication: OVARIAN CANCER
     Route: 042

REACTIONS (1)
  - ERYSIPELAS [None]
